FAERS Safety Report 20730795 (Version 2)
Quarter: 2024Q2

REPORT INFORMATION
  Report Type: Spontaneous
  Country: US (occurrence: US)
  Receive Date: 20220420
  Receipt Date: 20240415
  Transmission Date: 20240716
  Serious: No
  Sender: FDA-Public Use
  Company Number: US-ASTELLAS-2021US024163

PATIENT
  Sex: Female

DRUGS (4)
  1. LEXISCAN [Suspect]
     Active Substance: REGADENOSON
     Indication: Scan myocardial perfusion
     Dosage: 0.4 MG, TOTAL DOSE (1 FULL 5 ML SYRINGE) (STRENGTH: 0.4 MG/ 5ML)
     Route: 065
     Dates: start: 20210616, end: 20210616
  2. LEXISCAN [Suspect]
     Active Substance: REGADENOSON
     Indication: Scan myocardial perfusion
     Dosage: 0.4 MG, TOTAL DOSE (1 FULL 5 ML SYRINGE) (STRENGTH: 0.4 MG/ 5ML)
     Route: 065
     Dates: start: 20210616, end: 20210616
  3. LEXISCAN [Suspect]
     Active Substance: REGADENOSON
     Indication: Scan myocardial perfusion
     Dosage: 0.4 MG, TOTAL DOSE (1 FULL 5 ML SYRINGE) (STRENGTH: 0.4 MG/ 5ML)
     Route: 065
     Dates: start: 20210616, end: 20210616
  4. LEXISCAN [Suspect]
     Active Substance: REGADENOSON
     Indication: Scan myocardial perfusion
     Dosage: 0.4 MG, TOTAL DOSE (1 FULL 5 ML SYRINGE) (STRENGTH: 0.4 MG/ 5ML)
     Route: 065
     Dates: start: 20210616, end: 20210616

REACTIONS (3)
  - Diarrhoea [Recovered/Resolved]
  - Nausea [Recovered/Resolved]
  - Headache [Recovered/Resolved]

NARRATIVE: CASE EVENT DATE: 20210616
